FAERS Safety Report 11151621 (Version 1)
Quarter: 2015Q2

REPORT INFORMATION
  Report Type: Spontaneous
  Country: US (occurrence: None)
  Receive Date: 20150529
  Receipt Date: 20150529
  Transmission Date: 20150821
  Serious: Yes (Hospitalization, Disabling)
  Sender: FDA-Public Use
  Company Number: None

PATIENT
  Age: 63 Year
  Sex: Female
  Weight: 58.97 kg

DRUGS (2)
  1. CIPROFLOXACIN 1000 MILLIGRAMS A DAY [Suspect]
     Active Substance: CIPROFLOXACIN
     Indication: CYSTITIS
     Route: 048
     Dates: start: 20150509, end: 20150514
  2. IBUPROFEN. [Concomitant]
     Active Substance: IBUPROFEN

REACTIONS (6)
  - Neck pain [None]
  - Pain in extremity [None]
  - Pyrexia [None]
  - Hepatic enzyme increased [None]
  - Impaired work ability [None]
  - Decreased appetite [None]

NARRATIVE: CASE EVENT DATE: 20150511
